FAERS Safety Report 15670366 (Version 2)
Quarter: 2019Q2

REPORT INFORMATION
  Report Type: Spontaneous
  Country: GB (occurrence: GB)
  Receive Date: 20181129
  Receipt Date: 20190509
  Transmission Date: 20190711
  Serious: Yes (Other)
  Sender: FDA-Public Use
  Company Number: GB-PFIZER INC-2018486077

PATIENT

DRUGS (1)
  1. DOPAMINE HCL [Suspect]
     Active Substance: DOPAMINE HYDROCHLORIDE
     Dosage: 195 UG/KG, UNK
     Dates: start: 20180716

REACTIONS (4)
  - Incorrect drug administration rate [Unknown]
  - Pupillary reflex impaired [Unknown]
  - Pallor [Unknown]
  - Mydriasis [Unknown]

NARRATIVE: CASE EVENT DATE: 20180716
